FAERS Safety Report 15404402 (Version 1)
Quarter: 2018Q3

REPORT INFORMATION
  Report Type: Report from Study
  Country: None (occurrence: US)
  Receive Date: 20180919
  Receipt Date: 20180919
  Transmission Date: 20181010
  Serious: Yes (Other)
  Sender: FDA-Public Use
  Company Number: US-BAUSCH-BL-2018-025932

PATIENT
  Age: 60 Year

DRUGS (2)
  1. 5?FU [Suspect]
     Active Substance: FLUOROURACIL
     Indication: ADENOCARCINOMA GASTRIC
     Dosage: PART OF ADJUVANT CHEMOTHERAPY
     Route: 065
  2. LEUCOVORIN. [Suspect]
     Active Substance: LEUCOVORIN
     Indication: ADENOCARCINOMA GASTRIC
     Dosage: PART OF ADJUVANT CHEMOTHERAPY
     Route: 065

REACTIONS (1)
  - Myelitis [Unknown]
